FAERS Safety Report 12754685 (Version 2)
Quarter: 2016Q3

REPORT INFORMATION
  Report Type: Spontaneous
  Country: BR (occurrence: BR)
  Receive Date: 20160915
  Receipt Date: 20160926
  Transmission Date: 20161109
  Serious: Yes (Other)
  Sender: FDA-Public Use
  Company Number: PHHY2016BR125140

PATIENT
  Sex: Female
  Weight: 60 kg

DRUGS (4)
  1. CITALOPRAM [Suspect]
     Active Substance: CITALOPRAM HYDROBROMIDE
     Indication: DEPRESSION
     Dosage: 20 MG, UNK
     Route: 048
     Dates: start: 2010
  2. CITALOPRAM [Suspect]
     Active Substance: CITALOPRAM HYDROBROMIDE
     Dosage: 30 MG, UNK
     Route: 048
  3. PREDNISONE. [Concomitant]
     Active Substance: PREDNISONE
     Indication: DYSPNOEA
     Dosage: 1 DF, QD
     Route: 048
  4. RIVOTRIL [Concomitant]
     Active Substance: CLONAZEPAM
     Indication: ANXIETY
     Dosage: 1 DF, QD
     Route: 048
     Dates: start: 1996

REACTIONS (8)
  - Chest pain [Recovering/Resolving]
  - Fibromyalgia [Unknown]
  - Hypotension [Unknown]
  - Pain [Recovering/Resolving]
  - Drug dependence [Not Recovered/Not Resolved]
  - Depression [Unknown]
  - Wrong technique in product usage process [Unknown]
  - Dyspnoea [Recovering/Resolving]
